FAERS Safety Report 10193340 (Version 1)
Quarter: 2014Q2

REPORT INFORMATION
  Report Type: Spontaneous
  Country: US (occurrence: US)
  Receive Date: 20140524
  Receipt Date: 20140524
  Transmission Date: 20141212
  Serious: No
  Sender: FDA-Public Use
  Company Number: US-SA-2013SA112937

PATIENT
  Age: 89 Year
  Sex: Female

DRUGS (2)
  1. LANTUS SOLOSTAR [Suspect]
     Dosage: DOSE:40 UNIT(S)
     Route: 051
  2. SOLOSTAR [Concomitant]

REACTIONS (3)
  - Visual impairment [Unknown]
  - Blood glucose decreased [Unknown]
  - Accidental overdose [Unknown]
